FAERS Safety Report 5029228-7 (Version None)
Quarter: 2006Q2

REPORT INFORMATION
  Report Type: 
  Country: None (occurrence: None)
  Receive Date: 20060613
  Receipt Date: 20060531
  Transmission Date: 20061013
  Serious: Yes (Death)
  Sender: FDA-Public Use
  Company Number: 2006069654

PATIENT
  Age: 60 Year
  Sex: Female

DRUGS (2)
  1. IRINOTECAN HCL [Suspect]
     Indication: OVARIAN CANCER
     Dosage: UNK (26 MK, UNKNOWN), INTRAVENOUS
     Route: 042
     Dates: start: 20060510, end: 20060513
  2. CISPLATIN [Concomitant]

REACTIONS (4)
  - ARTERIAL RUPTURE [None]
  - ASCITES [None]
  - GASTROINTESTINAL PERFORATION [None]
  - MESENTERIC OCCLUSION [None]
